FAERS Safety Report 25327871 (Version 2)
Quarter: 2025Q2

REPORT INFORMATION
  Report Type: Spontaneous
  Country: US (occurrence: US)
  Receive Date: 20250518
  Receipt Date: 20250521
  Transmission Date: 20250717
  Serious: Yes (Other)
  Sender: SANOFI AVENTIS
  Company Number: US-SA-2025SA140244

PATIENT
  Sex: Male

DRUGS (17)
  1. DUPIXENT [Suspect]
     Active Substance: DUPILUMAB
     Indication: Hypervolaemia
     Dosage: 300 MG, QOW
     Route: 058
  2. EFFIENT [Concomitant]
     Active Substance: PRASUGREL HYDROCHLORIDE
  3. ALPRAZOLAM [Concomitant]
     Active Substance: ALPRAZOLAM
  4. ASPIRIN [Concomitant]
     Active Substance: ASPIRIN
  5. FOLIC ACID [Concomitant]
     Active Substance: FOLIC ACID
  6. LEXAPRO [Concomitant]
     Active Substance: ESCITALOPRAM OXALATE
  7. ATORVASTATIN [Concomitant]
     Active Substance: ATORVASTATIN
  8. Cartia [Concomitant]
  9. ESCITALOPRAM [Concomitant]
     Active Substance: ESCITALOPRAM OXALATE
  10. FUROSEMIDE [Concomitant]
     Active Substance: FUROSEMIDE
  11. HYDROXYZINE [Concomitant]
     Active Substance: HYDROXYZINE HYDROCHLORIDE
  12. LEVOTHYROXINE [Concomitant]
     Active Substance: LEVOTHYROXINE
  13. TRAMADOL HCL [Concomitant]
     Active Substance: TRAMADOL HYDROCHLORIDE
  14. TRIAMCINOLONE [Concomitant]
     Active Substance: TRIAMCINOLONE
  15. HYDRALAZINE [Concomitant]
     Active Substance: HYDRALAZINE HYDROCHLORIDE
  16. FENOFIBRATE [Concomitant]
     Active Substance: FENOFIBRATE
  17. VALSARTAN [Concomitant]
     Active Substance: VALSARTAN

REACTIONS (3)
  - Coronary artery stenosis [Unknown]
  - Inappropriate schedule of product administration [Unknown]
  - Product use in unapproved indication [Unknown]
